FAERS Safety Report 6278544-X (Version None)
Quarter: 2009Q3

REPORT INFORMATION
  Report Type: 
  Country: None (occurrence: None)
  Receive Date: 20090722
  Receipt Date: 20080722
  Transmission Date: 20100115
  Serious: No
  Sender: FDA-Public Use
  Company Number: CA-BAUSCH-2008BL003295

PATIENT
  Sex: Female

DRUGS (2)
  1. OPCON-A [Suspect]
     Indication: EYE IRRITATION
     Route: 047
  2. OPCON-A [Suspect]
     Indication: HYPERSENSITIVITY
     Route: 047

REACTIONS (1)
  - DRUG INEFFECTIVE [None]
